FAERS Safety Report 8405195-0 (Version None)
Quarter: 2012Q2

REPORT INFORMATION
  Report Type: 
  Country: None (occurrence: None)
  Receive Date: 20120603
  Receipt Date: 20120521
  Transmission Date: 20120825
  Serious: No
  Sender: FDA-Public Use
  Company Number: US-BAYER-2012-052693

PATIENT
  Age: 55 Year
  Sex: Female

DRUGS (2)
  1. ASPIRIN [Suspect]
     Indication: HEADACHE
     Route: 048
  2. ALEVE (CAPLET) [Suspect]
     Route: 048

REACTIONS (3)
  - SOMNOLENCE [None]
  - MIGRAINE [None]
  - DRUG INEFFECTIVE [None]
